FAERS Safety Report 9714101 (Version 1)
Quarter: 2013Q4

REPORT INFORMATION
  Report Type: Spontaneous
  Country: US (occurrence: US)
  Receive Date: 20131126
  Receipt Date: 20131126
  Transmission Date: 20140711
  Serious: No
  Sender: FDA-Public Use
  Company Number: US-GILEAD-2008-0018880

PATIENT
  Sex: Male

DRUGS (7)
  1. LETAIRIS [Suspect]
     Indication: PULMONARY ARTERIAL HYPERTENSION
     Route: 048
     Dates: start: 20081006
  2. REMODULIN [Concomitant]
  3. AMBIEN [Concomitant]
  4. NEXIUM [Concomitant]
  5. NEURONTIN [Concomitant]
  6. FUROSEMIDE [Concomitant]
  7. SPIRONOLACTONE [Concomitant]

REACTIONS (3)
  - Oedema [Recovered/Resolved]
  - Headache [Recovered/Resolved]
  - Fluid retention [Recovered/Resolved]
